FAERS Safety Report 8198246-2 (Version None)
Quarter: 2012Q1

REPORT INFORMATION
  Report Type: 
  Country: None (occurrence: None)
  Receive Date: 20120309
  Receipt Date: 20120229
  Transmission Date: 20120608
  Serious: Yes (Hospitalization)
  Sender: FDA-Public Use
  Company Number: DE-MERCK-1112DEU00003

PATIENT
  Age: 72 Year
  Sex: Female

DRUGS (4)
  1. ASPIRIN [Concomitant]
     Route: 065
  2. COZAAR [Suspect]
     Indication: HYPERTENSION
     Route: 048
     Dates: start: 19960101, end: 20120223
  3. HYZAAR [Suspect]
     Indication: HYPERTENSION
     Route: 048
     Dates: end: 20120223
  4. COZAAR [Suspect]
     Indication: CARDIAC FAILURE
     Route: 048
     Dates: start: 19960101, end: 20120223

REACTIONS (2)
  - HEART VALVE REPLACEMENT [None]
  - COUGH [None]
